FAERS Safety Report 12651765 (Version 1)
Quarter: 2016Q3

REPORT INFORMATION
  Report Type: Spontaneous
  Country: US (occurrence: US)
  Receive Date: 20160815
  Receipt Date: 20160815
  Transmission Date: 20161109
  Serious: No
  Sender: FDA-Public Use
  Company Number: US-B.I. PHARMACEUTICALS,INC./RIDGEFIELD-2016-BI-50536BP

PATIENT
  Age: 55 Year
  Sex: Male

DRUGS (1)
  1. GLYXAMBI [Suspect]
     Active Substance: EMPAGLIFLOZIN\LINAGLIPTIN
     Indication: GLUCOSE TOLERANCE IMPAIRED
     Dosage: STRENGTH: 25/5 MG
     Route: 065

REACTIONS (1)
  - Arterial disorder [Recovered/Resolved]

NARRATIVE: CASE EVENT DATE: 20160725
